FAERS Safety Report 8813632 (Version 1)
Quarter: 2012Q4

REPORT INFORMATION
  Report Type: 
  Country: US (occurrence: US)
  Receive Date: 20120927
  Receipt Date: 20120927
  Transmission Date: 20130627
  Serious: Yes (Hospitalization, Other)
  Sender: FDA-Public Use
  Company Number: US-EISAI INC-E3810-05722-SPO-US

PATIENT
  Age: 80 Year
  Sex: Female
  Weight: 61 kg

DRUGS (1)
  1. ACIPHEX [Suspect]
     Indication: ACID REFLUX (OESOPHAGEAL)
     Route: 048

REACTIONS (6)
  - Fall [Recovered/Resolved]
  - Pelvic fracture [Recovered/Resolved]
  - Pneumonia [Unknown]
  - Pulmonary thrombosis [Unknown]
  - Drug prescribing error [Not Recovered/Not Resolved]
  - Device issue [Unknown]
